FAERS Safety Report 17000084 (Version 1)
Quarter: 2019Q4

REPORT INFORMATION
  Report Type: Other
  Country: US (occurrence: US)
  Receive Date: 20191106
  Receipt Date: 20191106
  Transmission Date: 20200122
  Serious: No
  Sender: FDA-Public Use
  Company Number: US-PRAXAIR DISTRIBUTION, INC.-2076526

PATIENT

DRUGS (2)
  1. NOXBOXI (DEVICE) [Suspect]
     Active Substance: DEVICE
  2. NOXIVENT [Suspect]
     Active Substance: NITRIC OXIDE

REACTIONS (1)
  - Device battery issue [Recovered/Resolved]
